FAERS Safety Report 7656938-5 (Version None)
Quarter: 2011Q3

REPORT INFORMATION
  Report Type: 
  Country: None (occurrence: None)
  Receive Date: 20110804
  Receipt Date: 20110801
  Transmission Date: 20111222
  Serious: Yes (Other)
  Sender: FDA-Public Use
  Company Number: DE-PFIZER INC-2011151267

PATIENT
  Age: 54 Year
  Sex: Female

DRUGS (6)
  1. PHENYTOIN [Concomitant]
     Dosage: 100 MG, DAILY
  2. PANTOPRAZOLE [Suspect]
     Indication: DYSPEPSIA
     Dosage: 40 MG, 1X/DAY
     Dates: start: 20110523, end: 20110523
  3. PANTOPRAZOLE [Suspect]
     Indication: EPIGASTRIC DISCOMFORT
     Dosage: 40 MG, 1X/DAY
     Route: 065
     Dates: start: 20110530
  4. OBSIDAN [Concomitant]
     Dosage: 12.5 MG, DAILY
  5. MYSOLINE [Concomitant]
     Dosage: 750 MG, DAILY
  6. ANTELEPSIN [Concomitant]
     Dosage: 3 MG, DAILY

REACTIONS (2)
  - DRUG INTERACTION [None]
  - EPILEPSY [None]
